FAERS Safety Report 7937157-1 (Version None)
Quarter: 2011Q4

REPORT INFORMATION
  Report Type: 
  Country: None (occurrence: None)
  Receive Date: 20111123
  Receipt Date: 20111116
  Transmission Date: 20120403
  Serious: Yes (Death)
  Sender: FDA-Public Use
  Company Number: US-GLAXOSMITHKLINE-A0750309A

PATIENT
  Age: 55 Year
  Sex: Male
  Weight: 131.8 kg

DRUGS (11)
  1. NORMODYNE [Concomitant]
  2. AVANDIA [Suspect]
     Indication: TYPE 2 DIABETES MELLITUS
     Dosage: 8MG PER DAY
     Route: 065
     Dates: start: 20050110, end: 20060724
  3. COZAAR [Concomitant]
  4. METOLAZONE [Concomitant]
  5. HUMULIN R [Concomitant]
  6. ASPIRIN [Concomitant]
  7. NORVASC [Concomitant]
  8. ALLOPURINOL [Concomitant]
  9. LORATADINE [Concomitant]
  10. VYTORIN [Concomitant]
  11. POTASSIUM CHLORIDE [Concomitant]

REACTIONS (5)
  - MYOCARDIAL INFARCTION [None]
  - OEDEMA [None]
  - CARDIAC DISORDER [None]
  - HYPERLIPIDAEMIA [None]
  - CARDIAC ARREST [None]
